FAERS Safety Report 20925349 (Version 1)
Quarter: 2022Q2

REPORT INFORMATION
  Report Type: Spontaneous
  Country: RS (occurrence: None)
  Receive Date: 20220607
  Receipt Date: 20220607
  Transmission Date: 20220720
  Serious: Yes (Other)
  Sender: FDA-Public Use
  Company Number: RS-ROCHE-3110735

PATIENT
  Age: 27 Year
  Sex: Male

DRUGS (1)
  1. RITUXIMAB [Suspect]
     Active Substance: RITUXIMAB
     Indication: Diffuse large B-cell lymphoma
     Route: 065

REACTIONS (5)
  - Coma [Unknown]
  - Neutropenia [Unknown]
  - Abscess [Unknown]
  - Pyrexia [Unknown]
  - Inflammation [Unknown]
